FAERS Safety Report 8662048 (Version 3)
Quarter: 2012Q4

REPORT INFORMATION
  Report Type: 
  Country: BG (occurrence: BG)
  Receive Date: 20120712
  Receipt Date: 20121217
  Transmission Date: 20130627
  Serious: Yes (Hospitalization)
  Sender: FDA-Public Use
  Company Number: BG-ASTRAZENECA-2012SE45848

PATIENT
  Age: 76 Year
  Sex: Female

DRUGS (2)
  1. ATACAND [Suspect]
     Indication: HYPERTENSION
     Route: 048
     Dates: start: 20120602, end: 20120602
  2. SINTROM [Concomitant]
     Indication: ATRIAL FIBRILLATION
     Route: 048

REACTIONS (5)
  - Drug hypersensitivity [Unknown]
  - Dermatitis bullous [Unknown]
  - Oral mucosal blistering [Unknown]
  - Pruritus [Unknown]
  - Rash [Unknown]
